FAERS Safety Report 8838532 (Version 1)
Quarter: 2012Q4

REPORT INFORMATION
  Report Type: 
  Country: US (occurrence: US)
  Receive Date: 20121012
  Receipt Date: 20121012
  Transmission Date: 20130627
  Serious: Yes (Death, Hospitalization)
  Sender: FDA-Public Use
  Company Number: US-B.I. PHARMACEUTICALS,INC./RIDGEFIELD-2012-BP-25275BP

PATIENT
  Age: 68 Year
  Sex: Male

DRUGS (11)
  1. PRADAXA [Suspect]
     Indication: ATRIAL FIBRILLATION
     Dosage: 300 mg
     Route: 048
     Dates: start: 201110
  2. ZEBETA [Concomitant]
     Indication: CARDIAC DISORDER
     Dosage: 7.5 mg
     Route: 048
  3. ZOCOR [Concomitant]
     Indication: BLOOD CHOLESTEROL INCREASED
     Dosage: 20 mg
     Route: 048
  4. NEURONTIN [Concomitant]
     Indication: NEURITIS
     Dosage: 600 mg
     Route: 048
  5. RANEXA [Concomitant]
     Indication: CARDIAC DISORDER
     Dosage: 1000 mg
     Route: 048
  6. LISINOPRIL [Concomitant]
     Indication: CARDIAC FAILURE CONGESTIVE
     Dosage: 5 mg
     Route: 048
  7. LASIX [Concomitant]
     Indication: FLUID RETENTION
     Dosage: 20 mg
     Route: 048
  8. LEUCOVORIN [Concomitant]
     Indication: RHEUMATOID ARTHRITIS
     Dosage: 5 mg
     Route: 048
  9. PLAQUENIL [Concomitant]
     Indication: ARTHRITIS
     Dosage: 200 mg
     Route: 048
  10. METHOTREXATE [Concomitant]
     Indication: RHEUMATOID ARTHRITIS
     Dosage: 2.5 mg
     Route: 048
  11. ASPIRIN [Concomitant]
     Indication: CORONARY ARTERY DISEASE
     Dosage: 325 mg
     Route: 048

REACTIONS (4)
  - Embolic stroke [Fatal]
  - Embolic stroke [Recovered/Resolved with Sequelae]
  - Blindness [Not Recovered/Not Resolved]
  - Amnesia [Not Recovered/Not Resolved]
